FAERS Safety Report 7313833-9 (Version None)
Quarter: 2011Q1

REPORT INFORMATION
  Report Type: 
  Country: None (occurrence: None)
  Receive Date: 20110225
  Receipt Date: 20110217
  Transmission Date: 20110831
  Serious: Yes (Hospitalization)
  Sender: FDA-Public Use
  Company Number: JP-ASTRAZENECA-2011SE01803

PATIENT
  Age: 23251 Day
  Sex: Male
  Weight: 65 kg

DRUGS (10)
  1. SPIRIVA [Concomitant]
     Indication: CHRONIC OBSTRUCTIVE PULMONARY DISEASE
     Route: 055
  2. LOXONIN [Concomitant]
     Indication: HEADACHE
     Route: 048
     Dates: start: 20100916
  3. DIOVAN [Concomitant]
     Indication: HYPERTENSION
     Route: 048
     Dates: start: 20100826
  4. CALONAL [Concomitant]
     Indication: HEADACHE
     Dosage: DOSE UNKNOWN, AS REQUIRED
     Route: 048
     Dates: start: 20100826
  5. MYONAL [Concomitant]
     Indication: HEADACHE
     Dosage: DOSE UNKNOWN
     Route: 048
     Dates: start: 20100831
  6. SULTANOL [Concomitant]
     Indication: CHRONIC OBSTRUCTIVE PULMONARY DISEASE
     Route: 055
     Dates: start: 20100707
  7. BUFFERIN [Concomitant]
     Indication: HEADACHE
     Dosage: DOSE UNKNOWN
     Route: 048
     Dates: start: 20100825, end: 20100825
  8. KENALOG [Concomitant]
     Indication: STOMATITIS
     Dosage: DOSE UNKNOWN, AS REQUIRED
     Route: 061
     Dates: start: 20100826
  9. MUCOSTA [Concomitant]
     Indication: GASTRITIS PROPHYLAXIS
     Route: 048
     Dates: start: 20100916
  10. SYMBICORT [Suspect]
     Indication: CHRONIC OBSTRUCTIVE PULMONARY DISEASE
     Dosage: 160/4.5 UG TWO INHALATION TWO TIMES A DAY
     Route: 055
     Dates: start: 20100722

REACTIONS (1)
  - CHRONIC OBSTRUCTIVE PULMONARY DISEASE [None]
